FAERS Safety Report 22051504 (Version 10)
Quarter: 2025Q1

REPORT INFORMATION
  Report Type: Report from Study
  Country: US (occurrence: US)
  Receive Date: 20230301
  Receipt Date: 20250107
  Transmission Date: 20250408
  Serious: Yes (Life-Threatening, Other)
  Sender: CSL BEHRING
  Company Number: US-BEH-2023154382

PATIENT
  Age: 30 Year
  Sex: Female
  Weight: 91 kg

DRUGS (18)
  1. BERINERT [Suspect]
     Active Substance: HUMAN C1-ESTERASE INHIBITOR
     Indication: Hereditary angioedema
     Dosage: 1500 INTERNATIONAL UNIT/KILOGRAM, BIW
     Route: 042
  2. BERINERT [Suspect]
     Active Substance: HUMAN C1-ESTERASE INHIBITOR
     Indication: Hereditary angioedema
     Dosage: 1500 INTERNATIONAL UNIT/KILOGRAM, BIW
     Route: 042
  3. BERINERT [Suspect]
     Active Substance: HUMAN C1-ESTERASE INHIBITOR
     Indication: Prophylaxis
     Route: 042
  4. BERINERT [Suspect]
     Active Substance: HUMAN C1-ESTERASE INHIBITOR
     Indication: Prophylaxis
     Route: 042
  5. BERINERT [Suspect]
     Active Substance: HUMAN C1-ESTERASE INHIBITOR
     Route: 042
  6. BERINERT [Suspect]
     Active Substance: HUMAN C1-ESTERASE INHIBITOR
     Route: 042
  7. BERINERT [Suspect]
     Active Substance: HUMAN C1-ESTERASE INHIBITOR
     Route: 042
  8. BERINERT [Suspect]
     Active Substance: HUMAN C1-ESTERASE INHIBITOR
     Route: 042
  9. BERINERT [Suspect]
     Active Substance: HUMAN C1-ESTERASE INHIBITOR
     Route: 042
  10. BERINERT [Suspect]
     Active Substance: HUMAN C1-ESTERASE INHIBITOR
     Route: 042
  11. BERINERT [Suspect]
     Active Substance: HUMAN C1-ESTERASE INHIBITOR
     Route: 042
  12. BERINERT [Suspect]
     Active Substance: HUMAN C1-ESTERASE INHIBITOR
     Route: 042
  13. BERINERT [Suspect]
     Active Substance: HUMAN C1-ESTERASE INHIBITOR
     Route: 042
  14. BERINERT [Suspect]
     Active Substance: HUMAN C1-ESTERASE INHIBITOR
     Route: 042
  15. BERINERT [Suspect]
     Active Substance: HUMAN C1-ESTERASE INHIBITOR
     Route: 058
  16. BERINERT [Suspect]
     Active Substance: HUMAN C1-ESTERASE INHIBITOR
     Route: 058
  17. BERINERT [Suspect]
     Active Substance: HUMAN C1-ESTERASE INHIBITOR
     Indication: Hereditary angioedema
     Dosage: 5000.0IU/KG 2TW
     Route: 058
  18. BERINERT [Suspect]
     Active Substance: HUMAN C1-ESTERASE INHIBITOR
     Indication: Prophylaxis

REACTIONS (24)
  - Hereditary angioedema [Not Recovered/Not Resolved]
  - Hereditary angioedema [Not Recovered/Not Resolved]
  - Hereditary angioedema [Recovered/Resolved]
  - Hereditary angioedema [Recovered/Resolved]
  - Haematemesis [Unknown]
  - Hereditary angioedema [Not Recovered/Not Resolved]
  - Hereditary angioedema [Recovered/Resolved]
  - Haematemesis [Unknown]
  - Hereditary angioedema [Recovered/Resolved]
  - Hereditary angioedema [Recovering/Resolving]
  - Hereditary angioedema [Not Recovered/Not Resolved]
  - Off label use [Unknown]
  - Off label use [Unknown]
  - Abdominal pain [Not Recovered/Not Resolved]
  - Fear of death [Unknown]
  - Product dose omission issue [Not Recovered/Not Resolved]
  - Malaise [Unknown]
  - Fatigue [Unknown]
  - Nausea [Not Recovered/Not Resolved]
  - Vomiting [Not Recovered/Not Resolved]
  - Underdose [Unknown]
  - Illness [Unknown]
  - Product dose omission in error [Unknown]
  - Product distribution issue [Unknown]

NARRATIVE: CASE EVENT DATE: 20230221
